FAERS Safety Report 7291257-0 (Version None)
Quarter: 2011Q1

REPORT INFORMATION
  Report Type: 
  Country: None (occurrence: None)
  Receive Date: 20110214
  Receipt Date: 20110204
  Transmission Date: 20110831
  Serious: Yes (Hospitalization)
  Sender: FDA-Public Use
  Company Number: US-JNJFOC-20101002774

PATIENT
  Sex: Female
  Weight: 47.17 kg

DRUGS (9)
  1. TYLENOL-500 [Suspect]
     Route: 048
  2. REMERON [Concomitant]
     Indication: DEPRESSION
     Dosage: FOR 3-4 DAYS WITHIN THE LAST YEAR
  3. PAXIL [Concomitant]
     Indication: DEPRESSION
     Dosage: SINCE 3-4 WEEKS
  4. LISINOPRIL [Concomitant]
     Indication: HYPERTENSION
     Dosage: 1/4 TO 1/2 TAB PER DAY SINCE YEARS
  5. LEXAPRO [Concomitant]
     Indication: DEPRESSION
     Dosage: SEVERAL WEEKS WITHIN THE LAST YEAR
  6. ZOCOR [Concomitant]
  7. DIOVAN [Concomitant]
  8. TYLENOL-500 [Suspect]
     Indication: ARTHRALGIA
     Dosage: 1300 MG (AS 2 CAPLETS AS DIRECTED)
     Route: 048
  9. ZOLOFT [Concomitant]
     Indication: DEPRESSION
     Dosage: FOR 15 DAYS WITHIN LAST YEAR

REACTIONS (12)
  - HYPONATRAEMIA [None]
  - WEIGHT DECREASED [None]
  - PRODUCT QUALITY ISSUE [None]
  - COUGH [None]
  - VOMITING [None]
  - CHEST PAIN [None]
  - ANTINUCLEAR ANTIBODY POSITIVE [None]
  - HYPERHIDROSIS [None]
  - DECREASED APPETITE [None]
  - ASTHENIA [None]
  - MALAISE [None]
  - NAUSEA [None]
